FAERS Safety Report 16263592 (Version 1)
Quarter: 2019Q2

REPORT INFORMATION
  Report Type: Spontaneous
  Country: PL (occurrence: PL)
  Receive Date: 20190502
  Receipt Date: 20190502
  Transmission Date: 20190711
  Serious: Yes (Other)
  Sender: FDA-Public Use
  Company Number: PHHY2019PL095968

PATIENT
  Age: 75 Year
  Sex: Male

DRUGS (2)
  1. ACETYLSALICYLIC ACID [Suspect]
     Active Substance: ASPIRIN
     Indication: PRODUCT USED FOR UNKNOWN INDICATION
     Route: 065
  2. ACENOCOUMAROL [Concomitant]
     Active Substance: ACENOCOUMAROL
     Indication: PRODUCT USED FOR UNKNOWN INDICATION
     Route: 065

REACTIONS (9)
  - Chest pain [Unknown]
  - Dyspnoea exertional [Unknown]
  - Arteriosclerosis [Unknown]
  - Physical deconditioning [Unknown]
  - Orthopnoea [Unknown]
  - Mitral valve disease [Unknown]
  - Aortic valve disease [Unknown]
  - Oedema peripheral [Unknown]
  - Cardiac failure chronic [Unknown]
